FAERS Safety Report 13533518 (Version 1)
Quarter: 2017Q2

REPORT INFORMATION
  Report Type: Other
  Country: KR (occurrence: KR)
  Receive Date: 20170510
  Receipt Date: 20170510
  Transmission Date: 20170830
  Serious: Yes (Hospitalization, Other)
  Sender: FDA-Public Use
  Company Number: KR-MEDICURE INC.-2020545

PATIENT
  Age: 61 Year
  Sex: Female

DRUGS (6)
  1. AGGRASTAT [Suspect]
     Active Substance: TIROFIBAN HYDROCHLORIDE
     Indication: ANTIPLATELET THERAPY
     Route: 013
  2. AGGRASTAT [Suspect]
     Active Substance: TIROFIBAN HYDROCHLORIDE
     Route: 041
  3. HEPARIN [Concomitant]
     Active Substance: HEPARIN SODIUM
     Route: 040
  4. CLOPIDOGREL [Concomitant]
     Active Substance: CLOPIDOGREL BISULFATE
  5. HEPARIN [Concomitant]
     Active Substance: HEPARIN SODIUM
     Route: 040
  6. ASPIRIN. [Concomitant]
     Active Substance: ASPIRIN

REACTIONS (3)
  - Ruptured cerebral aneurysm [Recovered/Resolved]
  - Cerebral infarction [Unknown]
  - Haemorrhagic transformation stroke [Unknown]
